FAERS Safety Report 7046527-8 (Version None)
Quarter: 2010Q4

REPORT INFORMATION
  Report Type: 
  Country: None (occurrence: None)
  Receive Date: 20101014
  Receipt Date: 20101006
  Transmission Date: 20110411
  Serious: Yes (Hospitalization, Other)
  Sender: FDA-Public Use
  Company Number: JP-ABBOTT-10P-087-0671642-00

PATIENT
  Sex: Female

DRUGS (8)
  1. KLARICID TABLETS [Suspect]
     Indication: ATYPICAL MYCOBACTERIAL INFECTION
     Route: 048
     Dates: start: 20090609, end: 20090707
  2. RIFADIN [Concomitant]
     Indication: ATYPICAL MYCOBACTERIAL INFECTION
     Route: 048
     Dates: start: 20090609, end: 20090707
  3. ESANBUTOL [Concomitant]
     Indication: ATYPICAL MYCOBACTERIAL INFECTION
     Route: 048
     Dates: start: 20090609, end: 20090707
  4. SAWATENE [Concomitant]
     Indication: BRONCHITIS CHRONIC
     Route: 048
     Dates: start: 20090609
  5. TULOBUTEROL [Concomitant]
     Indication: BRONCHITIS CHRONIC
     Route: 062
     Dates: start: 20090609
  6. STREPTOMYCIN SULFATE [Concomitant]
     Indication: ATYPICAL MYCOBACTERIAL INFECTION
     Route: 030
     Dates: start: 20090609, end: 20090707
  7. NEUROTROPIN [Concomitant]
     Indication: INTERVERTEBRAL DISC PROTRUSION
     Route: 048
  8. TIZANIN [Concomitant]
     Indication: INTERVERTEBRAL DISC PROTRUSION
     Route: 048

REACTIONS (1)
  - LIVER DISORDER [None]
